FAERS Safety Report 15778548 (Version 5)
Quarter: 2020Q3

REPORT INFORMATION
  Report Type: Report from Study
  Country: US (occurrence: US)
  Receive Date: 20181231
  Receipt Date: 20200817
  Transmission Date: 20201102
  Serious: Yes (Hospitalization)
  Sender: FDA-Public Use
  Company Number: US-ACTELION-A-NJ2018-184200

PATIENT
  Sex: Female
  Weight: 49.89 kg

DRUGS (6)
  1. ADEMPAS [Concomitant]
     Active Substance: RIOCIGUAT
  2. ELIQUIS [Concomitant]
     Active Substance: APIXABAN
  3. REMODULIN [Suspect]
     Active Substance: TREPROSTINIL
     Dosage: UNK
     Route: 065
  4. OPSUMIT [Suspect]
     Active Substance: MACITENTAN
     Indication: PULMONARY ARTERIAL HYPERTENSION
     Dosage: 10 MG, QD
     Route: 048
  5. REMODULIN [Suspect]
     Active Substance: TREPROSTINIL
     Indication: PRODUCT USED FOR UNKNOWN INDICATION
     Route: 058
  6. COUMADIN [Concomitant]
     Active Substance: WARFARIN SODIUM

REACTIONS (10)
  - Abdominal abscess [Unknown]
  - Hospitalisation [Unknown]
  - Gastrointestinal disorder [Unknown]
  - Catheter site pain [Unknown]
  - Rectal haemorrhage [Unknown]
  - Catheter site infection [Unknown]
  - Asthenia [Unknown]
  - Catheter site inflammation [Unknown]
  - Catheter site erythema [Unknown]
  - Product contamination [Unknown]
